FAERS Safety Report 5341574-6 (Version None)
Quarter: 2007Q2

REPORT INFORMATION
  Report Type: 
  Country: None (occurrence: None)
  Receive Date: 20070529
  Receipt Date: 20070529
  Transmission Date: 20071010
  Serious: Yes (Other)
  Sender: FDA-Public Use
  Company Number: None

PATIENT
  Sex: Male
  Weight: 79.3795 kg

DRUGS (3)
  1. BEVACIZUMAB, GENENTECH [Suspect]
     Indication: NON-SMALL CELL LUNG CANCER
     Dosage: 750 MG Q 4 WKS IV
     Route: 042
     Dates: start: 20061017, end: 20070424
  2. ZOMETA [Concomitant]
  3. ARIXTRA [Concomitant]

REACTIONS (3)
  - COGNITIVE DISORDER [None]
  - ENCEPHALITIS [None]
  - PARANEOPLASTIC SYNDROME [None]
